FAERS Safety Report 21120244 (Version 5)
Quarter: 2022Q3

REPORT INFORMATION
  Report Type: Spontaneous
  Country: GB (occurrence: GB)
  Receive Date: 20220722
  Receipt Date: 20220823
  Transmission Date: 20221026
  Serious: Yes (Death, Other)
  Sender: FDA-Public Use
  Company Number: None

PATIENT
  Age: 65 Year
  Sex: Male

DRUGS (29)
  1. KETAMINE HYDROCHLORIDE [Suspect]
     Active Substance: KETAMINE HYDROCHLORIDE
     Dosage: UNK
     Route: 065
     Dates: start: 20210310, end: 20210328
  2. DEXAMETHASONE SODIUM PHOSPHATE [Suspect]
     Active Substance: DEXAMETHASONE SODIUM PHOSPHATE
     Dosage: UNK
     Route: 065
     Dates: start: 20210310, end: 20210328
  3. ANIDULAFUNGIN [Suspect]
     Active Substance: ANIDULAFUNGIN
     Dosage: UNK
     Route: 065
     Dates: start: 20210310, end: 20210328
  4. LANSOPRAZOLE [Suspect]
     Active Substance: LANSOPRAZOLE
     Dosage: UNK
     Route: 065
     Dates: start: 20210310, end: 20210328
  5. LEVOFLOXACIN [Suspect]
     Active Substance: LEVOFLOXACIN
     Dosage: UNK
     Route: 065
     Dates: start: 20210310, end: 20210328
  6. MEROPENEM [Suspect]
     Active Substance: MEROPENEM
     Dosage: UNK
     Route: 065
     Dates: start: 20210310, end: 20210328
  7. PIPERACILLIN SODIUM\TAZOBACTAM SODIUM [Suspect]
     Active Substance: PIPERACILLIN SODIUM\TAZOBACTAM SODIUM
     Dosage: UNK
     Route: 065
     Dates: start: 20210310, end: 20210328
  8. INSULIN HUMAN [Suspect]
     Active Substance: INSULIN HUMAN
     Dosage: UNK
     Route: 065
     Dates: start: 20210310, end: 20210328
  9. AMOXICILLIN\CLAVULANATE POTASSIUM [Suspect]
     Active Substance: AMOXICILLIN\CLAVULANATE POTASSIUM
     Dosage: UNK
     Route: 065
     Dates: start: 20210310, end: 20210328
  10. AMINOPHYLLINE [Suspect]
     Active Substance: AMINOPHYLLINE
     Dosage: UNK
     Route: 065
     Dates: start: 20210310, end: 20210328
  11. REMDESIVIR [Suspect]
     Active Substance: REMDESIVIR
     Dosage: UNK
     Route: 065
     Dates: start: 20210310, end: 20210328
  12. TINZAPARIN [Suspect]
     Active Substance: TINZAPARIN
     Dosage: UNK
     Route: 065
     Dates: start: 20210310, end: 20210328
  13. MAGNESIUM [Suspect]
     Active Substance: MAGNESIUM
     Dosage: UNK
     Route: 065
     Dates: start: 20210310, end: 20210328
  14. CLARITHROMYCIN [Suspect]
     Active Substance: CLARITHROMYCIN
     Dosage: UNK
     Route: 065
     Dates: start: 20210310, end: 20210328
  15. METOCLOPRAMIDE [Suspect]
     Active Substance: METOCLOPRAMIDE
     Dosage: UNK
     Route: 065
     Dates: start: 20210310, end: 20210328
  16. IPRATROPIUM [Suspect]
     Active Substance: IPRATROPIUM
     Dosage: UNK
     Route: 065
     Dates: start: 20210310, end: 20210328
  17. PROPOFOL [Suspect]
     Active Substance: PROPOFOL
     Dosage: UNK
     Route: 065
     Dates: start: 20210310, end: 20210328
  18. ALBUTEROL [Suspect]
     Active Substance: ALBUTEROL
     Dosage: UNK
     Route: 065
     Dates: start: 20210310, end: 20210328
  19. FENTANYL [Suspect]
     Active Substance: FENTANYL
     Dosage: UNK
     Route: 065
     Dates: start: 20210310, end: 20210328
  20. TEICOPLANIN [Suspect]
     Active Substance: TEICOPLANIN
     Dosage: UNK
     Route: 065
     Dates: start: 20210310, end: 20210328
  21. ROCURONIUM [Suspect]
     Active Substance: ROCURONIUM BROMIDE
     Dosage: UNK
     Route: 065
     Dates: start: 20210310, end: 20210328
  22. MELATONIN [Suspect]
     Active Substance: MELATONIN
     Dosage: UNK
     Route: 065
     Dates: start: 20210310, end: 20210328
  23. HEPARIN [Suspect]
     Active Substance: HEPARIN SODIUM
     Dosage: UNK
     Route: 065
     Dates: start: 20210310, end: 20210328
  24. GLUCONIC ACID [Suspect]
     Active Substance: GLUCONIC ACID
     Dosage: UNK
     Route: 065
     Dates: start: 20210310, end: 20210328
  25. ACETAMINOPHEN [Suspect]
     Active Substance: ACETAMINOPHEN
     Dosage: UNK
     Route: 065
     Dates: start: 20210310, end: 20210328
  26. FUROSEMIDE [Suspect]
     Active Substance: FUROSEMIDE
     Dosage: UNK
     Route: 065
     Dates: start: 20210310, end: 20210328
  27. EPOPROSTENOL [Suspect]
     Active Substance: EPOPROSTENOL
     Dosage: UNK
     Route: 065
     Dates: start: 20210310, end: 20210328
  28. OMEPRAZOLE [Suspect]
     Active Substance: OMEPRAZOLE
     Dosage: UNK
     Route: 065
     Dates: start: 20210310, end: 20210328
  29. TOCILIZUMAB [Suspect]
     Active Substance: TOCILIZUMAB
     Dosage: UNK
     Route: 065
     Dates: start: 20210310, end: 20210328

REACTIONS (4)
  - Contraindicated product administered [Fatal]
  - Drug ineffective [Fatal]
  - Multiple organ dysfunction syndrome [Fatal]
  - COVID-19 pneumonia [Fatal]
